FAERS Safety Report 10438209 (Version 2)
Quarter: 2014Q4

REPORT INFORMATION
  Report Type: Spontaneous
  Country: US (occurrence: US)
  Receive Date: 20140908
  Receipt Date: 20141205
  Transmission Date: 20150528
  Serious: No
  Sender: FDA-Public Use
  Company Number: US-BRISTOL-MYERS SQUIBB COMPANY-21134242

PATIENT
  Age: 71 Year
  Sex: Male
  Weight: 83.9 kg

DRUGS (9)
  1. PROZAC [Concomitant]
     Active Substance: FLUOXETINE HYDROCHLORIDE
  2. ABILIFY [Suspect]
     Active Substance: ARIPIPRAZOLE
     Indication: DEPRESSION
  3. PRIMIDONE. [Concomitant]
     Active Substance: PRIMIDONE
  4. TESTOSTERONE. [Concomitant]
     Active Substance: TESTOSTERONE
  5. AMLODIPINE [Concomitant]
     Active Substance: AMLODIPINE BESYLATE
  6. SIMVASTATIN. [Concomitant]
     Active Substance: SIMVASTATIN
  7. FLOMAX [Concomitant]
     Active Substance: TAMSULOSIN HYDROCHLORIDE
  8. HYDROCHLOROTHIAZIDE. [Concomitant]
     Active Substance: HYDROCHLOROTHIAZIDE
  9. ZIPRASIDONE [Suspect]
     Active Substance: ZIPRASIDONE
     Indication: DEPRESSION
     Route: 048
     Dates: start: 20140616, end: 20140620

REACTIONS (5)
  - Hallucination [Recovering/Resolving]
  - Somnolence [Unknown]
  - Speech disorder [Unknown]
  - Medication error [Unknown]
  - Anxiety [Recovering/Resolving]

NARRATIVE: CASE EVENT DATE: 20140616
